FAERS Safety Report 9464858 (Version 2)
Quarter: 2013Q4

REPORT INFORMATION
  Report Type: Report from Study
  Country: BR (occurrence: BR)
  Receive Date: 20130819
  Receipt Date: 20131104
  Transmission Date: 20140711
  Serious: Yes (Other)
  Sender: FDA-Public Use
  Company Number: PHHY2013BR087076

PATIENT
  Age: 58 Year
  Sex: Male

DRUGS (7)
  1. DIOVAN HCT [Suspect]
     Indication: HYPERTENSION
     Dosage: 2 DF (320/12.5MG), A DAY
     Route: 048
  2. DIOVAN HCT [Suspect]
     Dosage: 1 DF (320/12.5MG), A DAY
  3. DIOVAN HCT [Suspect]
     Dosage: 2 DF (320/12.5MG), DAILY
     Route: 048
  4. SIMVASTATIN [Concomitant]
     Indication: PULSE ABNORMAL
     Dosage: 1 DF (20MG), DAILY
     Route: 048
  5. CARVEDILOL [Concomitant]
     Indication: PULSE ABNORMAL
     Dosage: 1 DF (25MG), DAILY
     Route: 048
  6. DIAZEPAM [Concomitant]
     Indication: HYPERTENSION
     Dosage: 2 DF, DAILY
     Route: 048
  7. DORIL [Concomitant]
     Indication: HEADACHE
     Dosage: 4 DF, DAILY
     Route: 048

REACTIONS (9)
  - Pituitary tumour benign [Not Recovered/Not Resolved]
  - Blood pressure increased [Recovered/Resolved]
  - Alcohol poisoning [Recovered/Resolved]
  - Stress [Unknown]
  - Malaise [Not Recovered/Not Resolved]
  - Pollakiuria [Not Recovered/Not Resolved]
  - Muscle spasms [Not Recovered/Not Resolved]
  - Dizziness [Recovered/Resolved]
  - Headache [Unknown]
